FAERS Safety Report 8499162-9 (Version None)
Quarter: 2012Q2

REPORT INFORMATION
  Report Type: 
  Country: None (occurrence: None)
  Receive Date: 20120405
  Receipt Date: 20100603
  Transmission Date: 20120825
  Serious: Yes (Disabling)
  Sender: FDA-Public Use
  Company Number: PHHY2010US33691

PATIENT
  Age: 59 Year
  Sex: Female
  Weight: 79.4 kg

DRUGS (12)
  1. SYNTHROID [Concomitant]
  2. RED YEAST RICE [Concomitant]
  3. RECLAST [Suspect]
     Indication: OSTEOPOROSIS
     Dosage: 5 MG, INTRAVENOUS
     Route: 042
     Dates: start: 20100515
  4. BENICAR [Concomitant]
  5. MULTIVITAMINS (ASCORBIC ACID, ERGOCALCIFEROL, FOLIC ACID, NICOTINAMIDE [Concomitant]
  6. REQUIP [Concomitant]
  7. VITAMIN D [Concomitant]
  8. IODERAL [Concomitant]
  9. GLUTATHIONE (GLUTATHIONE) [Concomitant]
  10. MAGNESIUM GLYCINATE [Concomitant]
  11. CALCIUM CARBONATE [Concomitant]
  12. IBUPROFEN [Concomitant]

REACTIONS (12)
  - HEADACHE [None]
  - ARTHRALGIA [None]
  - OEDEMA PERIPHERAL [None]
  - TOOTHACHE [None]
  - PYREXIA [None]
  - MYALGIA [None]
  - PAIN OF SKIN [None]
  - DIZZINESS [None]
  - MUSCLE SPASMS [None]
  - PAIN [None]
  - PAIN IN EXTREMITY [None]
  - BONE PAIN [None]
